FAERS Safety Report 17550994 (Version 1)
Quarter: 2020Q1

REPORT INFORMATION
  Report Type: Spontaneous
  Country: US (occurrence: US)
  Receive Date: 20200317
  Receipt Date: 20200317
  Transmission Date: 20200409
  Serious: No
  Sender: FDA-Public Use
  Company Number: US-ASTELLAS-2020US009053

PATIENT
  Age: 66 Year
  Sex: Female

DRUGS (1)
  1. CRESEMBA [Suspect]
     Active Substance: ISAVUCONAZONIUM SULFATE
     Indication: PRODUCT USED FOR UNKNOWN INDICATION
     Route: 065
     Dates: start: 20200219

REACTIONS (5)
  - Lip dry [Unknown]
  - Weight decreased [Unknown]
  - Oral mucosal blistering [Unknown]
  - Tongue discomfort [Unknown]
  - Glossodynia [Unknown]
